FAERS Safety Report 8302743-6 (Version None)
Quarter: 2012Q2

REPORT INFORMATION
  Report Type: 
  Country: None (occurrence: None)
  Receive Date: 20120420
  Receipt Date: 20120412
  Transmission Date: 20120825
  Serious: Yes (Other)
  Sender: FDA-Public Use
  Company Number: US-ELI_LILLY_AND_COMPANY-US201204003933

PATIENT
  Sex: Female

DRUGS (10)
  1. METFORMIN HCL [Concomitant]
     Indication: TYPE 2 DIABETES MELLITUS
     Dosage: 850 MG, TID
     Route: 048
  2. GLIMEPIRIDE [Concomitant]
     Indication: TYPE 2 DIABETES MELLITUS
     Dosage: 2 MG, QD
     Route: 048
  3. LEVOTHYROXINE SODIUM [Concomitant]
     Dosage: 50 UG, QD
     Route: 048
  4. ALDACTONE [Concomitant]
     Dosage: 25 MG, QD
     Route: 048
  5. BUMETANIDE [Concomitant]
     Dosage: UNK, QD
     Route: 048
  6. PROTONIX [Concomitant]
     Dosage: 40 MG, QD
     Route: 048
  7. VYTORIN [Concomitant]
     Dosage: UNK, QD
     Route: 048
  8. COZAAR [Concomitant]
     Dosage: UNK, QD
     Route: 048
  9. BYDUREON [Suspect]
     Indication: TYPE 2 DIABETES MELLITUS
     Dosage: 2 MG, WEEKLY (1/W)
     Route: 058
     Dates: start: 20120301, end: 20120402
  10. PREMARIN [Concomitant]
     Dosage: UNK, QD
     Route: 048

REACTIONS (4)
  - PHARYNGEAL ERYTHEMA [None]
  - PHARYNGEAL OEDEMA [None]
  - GENERALISED ERYTHEMA [None]
  - PRURITUS GENERALISED [None]
